FAERS Safety Report 6465894-7 (Version None)
Quarter: 2009Q4

REPORT INFORMATION
  Report Type: 
  Country: None (occurrence: None)
  Receive Date: 20091202
  Receipt Date: 20091130
  Transmission Date: 20100525
  Serious: Yes (Other)
  Sender: FDA-Public Use
  Company Number: US-ASTRAZENECA-2009UW13485

PATIENT
  Age: 56 Year
  Sex: Female
  Weight: 68.9 kg

DRUGS (4)
  1. SEROQUEL [Suspect]
     Indication: DEPRESSION
     Dosage: 50 MG TO 100 MG
     Route: 048
     Dates: start: 20031001, end: 20081201
  2. ZYPREXA [Concomitant]
     Dates: start: 20020101
  3. LIBRIUM [Concomitant]
  4. TRILAFON [Concomitant]
     Dates: start: 19940101

REACTIONS (3)
  - BACK INJURY [None]
  - PANCREATITIS [None]
  - RESPIRATORY DISTRESS [None]
